FAERS Safety Report 8845836 (Version 1)
Quarter: 2012Q4

REPORT INFORMATION
  Report Type: 
  Country: MX (occurrence: MX)
  Receive Date: 20121017
  Receipt Date: 20121017
  Transmission Date: 20130627
  Serious: Yes (Hospitalization)
  Sender: FDA-Public Use
  Company Number: MX-B.I. PHARMACEUTICALS,INC./RIDGEFIELD-2012-MX-00275MX

PATIENT
  Age: 28 Year
  Sex: Male

DRUGS (3)
  1. DABIGATRAN ETEXILATE [Suspect]
     Indication: THROMBOSIS PROPHYLAXIS
     Dosage: 110 mg
     Route: 048
     Dates: start: 201204, end: 201204
  2. ANALGESIC [Concomitant]
     Indication: PAIN
  3. ANTIINFLAMMATORY [Concomitant]
     Indication: INFLAMMATION

REACTIONS (2)
  - Venous thrombosis [Recovered/Resolved]
  - Haematoma [Recovered/Resolved]
